FAERS Safety Report 5851232-7 (Version None)
Quarter: 2008Q3

REPORT INFORMATION
  Report Type: 
  Country: None (occurrence: None)
  Receive Date: 20080820
  Receipt Date: 20080811
  Transmission Date: 20090109
  Serious: Yes (Other)
  Sender: FDA-Public Use
  Company Number: US-JNJFOC-20080800970

PATIENT
  Age: 60 Year
  Sex: Female
  Weight: 59.88 kg

DRUGS (6)
  1. LEVAQUIN [Suspect]
     Indication: URINARY TRACT INFECTION
     Dosage: THE PATIENT WAS PRESCRIBED WITH 3 SAMPLE TABLETS OF LEVAQUIN 750MG.
     Route: 048
  2. MONOPRIL [Concomitant]
     Indication: HYPERTENSION
     Dosage: ON JULY 6TH THE PATIENT TOOK 6 MINOPRIL 100MG TABLETS TO LOWER THE DIASTOLIC BP BELOW 100.
     Route: 048
  3. CRESTOR [Concomitant]
     Indication: HYPERLIPIDAEMIA
     Route: 048
  4. VICODIN [Concomitant]
     Indication: PAIN
     Dosage: AS NEEDED
     Route: 048
  5. LUNESTA [Concomitant]
     Indication: INSOMNIA
     Dosage: AS NEEDED
     Route: 048
  6. PAIN MEDICATION [Concomitant]
     Indication: PAIN

REACTIONS (5)
  - CARTILAGE INJURY [None]
  - HYPERTENSION [None]
  - INSOMNIA [None]
  - TENDON PAIN [None]
  - TENDON RUPTURE [None]
